FAERS Safety Report 10267793 (Version 1)
Quarter: 2014Q2

REPORT INFORMATION
  Report Type: Report from Study
  Country: FR (occurrence: FR)
  Receive Date: 20140630
  Receipt Date: 20140630
  Transmission Date: 20141212
  Serious: Yes (Other)
  Sender: FDA-Public Use
  Company Number: FR-BAYER-2014-096715

PATIENT
  Sex: Female

DRUGS (2)
  1. MIRENA [Suspect]
     Dosage: 20 MCG/24HR, CONT
     Route: 015
     Dates: start: 2013
  2. QLAIRA [Suspect]

REACTIONS (6)
  - Genital haemorrhage [None]
  - Swelling [None]
  - Feeling abnormal [None]
  - Weight increased [None]
  - Weight increased [None]
  - Breast disorder [None]
